FAERS Safety Report 6404341-8 (Version None)
Quarter: 2009Q4

REPORT INFORMATION
  Report Type: 
  Country: None (occurrence: None)
  Receive Date: 20091016
  Receipt Date: 20090917
  Transmission Date: 20100525
  Serious: No
  Sender: FDA-Public Use
  Company Number: US-BAYER-200914709BCC

PATIENT
  Age: 74 Year
  Sex: Female
  Weight: 64 kg

DRUGS (9)
  1. ALEVE [Suspect]
     Indication: DRUG USE FOR UNKNOWN INDICATION
     Route: 048
     Dates: start: 19990101
  2. ALEVE [Suspect]
     Dosage: TOTAL DAILY DOSE: 440 MG  UNIT DOSE: 220 MG
     Route: 048
     Dates: start: 20090916
  3. NORVASC [Concomitant]
     Route: 065
  4. ZESTRIL [Concomitant]
     Route: 065
  5. CRESTOR [Concomitant]
     Route: 065
  6. HYDROCHLOROTHIAZIDE [Concomitant]
     Route: 065
  7. PREVACID [Concomitant]
     Route: 065
  8. TUMS [Concomitant]
     Route: 065
  9. ASPIRIN [Concomitant]
     Route: 065

REACTIONS (2)
  - DIZZINESS [None]
  - PRURITUS [None]
